FAERS Safety Report 7292033-5 (Version None)
Quarter: 2011Q1

REPORT INFORMATION
  Report Type: 
  Country: None (occurrence: None)
  Receive Date: 20110215
  Receipt Date: 20110204
  Transmission Date: 20110831
  Serious: Yes (Hospitalization)
  Sender: FDA-Public Use
  Company Number: US-BIOGENIDEC-2011BI004398

PATIENT
  Age: 57 Year
  Sex: Female

DRUGS (2)
  1. AVONEX [Concomitant]
     Indication: MULTIPLE SCLEROSIS
     Route: 030
     Dates: start: 19960501, end: 19990501
  2. TYSABRI [Suspect]
     Indication: MULTIPLE SCLEROSIS
     Route: 042
     Dates: start: 20100603

REACTIONS (4)
  - OVERDOSE [None]
  - HYPOTENSION [None]
  - DRUG DELIVERY DEVICE IMPLANTATION [None]
  - ENTERITIS INFECTIOUS [None]
